FAERS Safety Report 16384311 (Version 4)
Quarter: 2019Q3

REPORT INFORMATION
  Report Type: Report from Study
  Country: ZA (occurrence: ZA)
  Receive Date: 20190603
  Receipt Date: 20190806
  Transmission Date: 20191004
  Serious: Yes (Hospitalization, Other)
  Sender: FDA-Public Use
  Company Number: ZA-GILEAD-2019-0411141

PATIENT
  Age: 26 Year
  Sex: Female
  Weight: 90.4 kg

DRUGS (7)
  1. EMTRICITABINE/TENOFOVIR DISOPROXIL FUMARATE [Suspect]
     Active Substance: EMTRICITABINE\TENOFOVIR DISOPROXIL FUMARATE
     Indication: PROPHYLAXIS AGAINST HIV INFECTION
     Dosage: 1 DOSAGE FORM, QD
     Route: 048
     Dates: start: 20190117, end: 20190417
  2. AZITHROMYCIN ANHYDROUS. [Concomitant]
     Active Substance: AZITHROMYCIN ANHYDROUS
     Indication: VAGINAL DISCHARGE
     Dosage: UNK
     Dates: start: 20190530, end: 20190530
  3. METRONIDAZOLE. [Concomitant]
     Active Substance: METRONIDAZOLE
     Dosage: UNK
     Dates: start: 20190618, end: 20190623
  4. CEFTRIAXONE. [Concomitant]
     Active Substance: CEFTRIAXONE
     Indication: VAGINAL DISCHARGE
     Dosage: UNK
     Dates: start: 20190530, end: 20190530
  5. PARACETAMOL [Concomitant]
     Active Substance: ACETAMINOPHEN
     Indication: HAEMORRHAGE IN PREGNANCY
     Dosage: UNK
     Dates: start: 20190618, end: 20190623
  6. METRONIDAZOLE. [Concomitant]
     Active Substance: METRONIDAZOLE
     Indication: VAGINAL DISCHARGE
     Dosage: UNK
     Dates: start: 20190530, end: 20190530
  7. AMOXIL [AMOXICILLIN] [Concomitant]
     Indication: HAEMORRHAGE IN PREGNANCY
     Dosage: UNK
     Dates: start: 20190618, end: 20190623

REACTIONS (5)
  - Pelvic inflammatory disease [Recovered/Resolved]
  - Abdominal distension [Recovered/Resolved]
  - Abortion spontaneous [Recovered/Resolved]
  - Abdominal pain [Recovered/Resolved]
  - Maternal exposure during pregnancy [Recovered/Resolved]

NARRATIVE: CASE EVENT DATE: 20190403
